FAERS Safety Report 9787852 (Version 1)
Quarter: 2013Q4

REPORT INFORMATION
  Report Type: Spontaneous
  Country: US (occurrence: US)
  Receive Date: 20131230
  Receipt Date: 20131230
  Transmission Date: 20140711
  Serious: Yes (Hospitalization)
  Sender: FDA-Public Use
  Company Number: US-BAYER-2013-156166

PATIENT
  Sex: Female

DRUGS (1)
  1. MIRENA [Suspect]
     Dosage: 20 MCG/24HR, CONT
     Route: 015
     Dates: start: 200711, end: 201105

REACTIONS (5)
  - Pelvic inflammatory disease [None]
  - Pelvic pain [None]
  - Emotional distress [None]
  - Vaginal discharge [None]
  - Injury [None]
